FAERS Safety Report 19955258 (Version 1)
Quarter: 2021Q4

REPORT INFORMATION
  Report Type: Spontaneous
  Country: CA (occurrence: CA)
  Receive Date: 20211013
  Receipt Date: 20211013
  Transmission Date: 20220303
  Serious: Yes (Other)
  Sender: FDA-Public Use
  Company Number: CA-ANIPHARMA-2021-CA-001544

PATIENT
  Age: 55 Year
  Sex: Male

DRUGS (3)
  1. CANDESARTAN CILEXETIL [Suspect]
     Active Substance: CANDESARTAN CILEXETIL
     Indication: Hypertension
     Dosage: 32 MG, EVERY 1 DAY / DOSE TEXT: 8 MG, UNKNOWN
     Route: 048
  2. HYDROCHLOROTHIAZIDE [Suspect]
     Active Substance: HYDROCHLOROTHIAZIDE
     Route: 048
  3. PONATINIB [Suspect]
     Active Substance: PONATINIB
     Route: 065

REACTIONS (2)
  - Renal artery stenosis [Recovered/Resolved]
  - Blood creatinine increased [Recovered/Resolved]
